FAERS Safety Report 24317343 (Version 1)
Quarter: 2024Q3

REPORT INFORMATION
  Report Type: Spontaneous
  Country: GR (occurrence: GR)
  Receive Date: 20240913
  Receipt Date: 20240913
  Transmission Date: 20241017
  Serious: Yes (Other)
  Sender: RANBAXY
  Company Number: GR-GREOF-202400724

PATIENT
  Age: 70 Year
  Sex: Female
  Weight: 85 kg

DRUGS (5)
  1. EZETIMIBE [Suspect]
     Active Substance: EZETIMIBE
     Indication: Cerebrovascular accident
     Dosage: 1 DOSAGE FORM, DAILY
     Route: 048
     Dates: start: 20240312, end: 20240618
  2. PITAVASTATIN [Suspect]
     Active Substance: PITAVASTATIN
     Indication: Cerebrovascular accident
     Dosage: 1 DOSAGE FORM, DAILY
     Route: 048
     Dates: start: 20240312, end: 20240618
  3. ROSUVASTATIN [Suspect]
     Active Substance: ROSUVASTATIN\ROSUVASTATIN CALCIUM
     Indication: Cerebrovascular accident
     Dosage: 1 DOSAGE FORM, DAILY
     Route: 048
     Dates: start: 20240312, end: 20240618
  4. ATORVASTATIN [Suspect]
     Active Substance: ATORVASTATIN
     Indication: Cerebrovascular accident
     Dosage: 1 DOSAGE FORM, DAILY
     Route: 048
     Dates: start: 20240312, end: 20240618
  5. SIMVASTATIN [Suspect]
     Active Substance: SIMVASTATIN
     Indication: Cerebrovascular accident
     Dosage: 1 DOSAGE FORM, DAILY
     Route: 048
     Dates: start: 20240312, end: 20240618

REACTIONS (2)
  - Myalgia [Recovering/Resolving]
  - Face oedema [Recovering/Resolving]

NARRATIVE: CASE EVENT DATE: 20240429
